FAERS Safety Report 18841404 (Version 1)
Quarter: 2021Q1

REPORT INFORMATION
  Report Type: Spontaneous
  Country: HU (occurrence: HU)
  Receive Date: 20210203
  Receipt Date: 20210203
  Transmission Date: 20210419
  Serious: Yes (Death, Other)
  Sender: FDA-Public Use
  Company Number: HU-GILEAD-2021-0514617

PATIENT
  Age: 89 Year
  Sex: Female

DRUGS (12)
  1. CEFTRIAXON KABI [Concomitant]
     Active Substance: CEFTRIAXONE
     Route: 065
  2. QUAMATEL [Concomitant]
     Active Substance: FAMOTIDINE
  3. MEZITAN [Concomitant]
     Route: 065
  4. VITAMIN D3 [Concomitant]
     Active Substance: CHOLECALCIFEROL
     Route: 065
  5. NORMODIPINE [Concomitant]
     Active Substance: AMLODIPINE BESYLATE
     Route: 065
  6. TRITACE [Concomitant]
     Active Substance: RAMIPRIL
     Route: 065
  7. VITAMIN C [Concomitant]
     Active Substance: ASCORBIC ACID
     Route: 065
  8. MEDROL [Concomitant]
     Active Substance: METHYLPREDNISOLONE
     Route: 065
  9. VEKLURY [Suspect]
     Active Substance: REMDESIVIR
     Indication: COVID-19
     Route: 042
     Dates: start: 20201120, end: 20201120
  10. ZITROCIN [Concomitant]
     Route: 065
  11. CLEXANE [Concomitant]
     Active Substance: ENOXAPARIN SODIUM
     Route: 058
  12. KERBERAN [Concomitant]
     Active Substance: CLOPIDOGREL BESILATE
     Route: 065

REACTIONS (4)
  - Dyspnoea [Recovered/Resolved]
  - COVID-19 pneumonia [Fatal]
  - Hypersensitivity [Recovered/Resolved]
  - Sepsis [Fatal]

NARRATIVE: CASE EVENT DATE: 20201120
